FAERS Safety Report 5615374-3 (Version None)
Quarter: 2008Q1

REPORT INFORMATION
  Report Type: 
  Country: None (occurrence: None)
  Receive Date: 20080131
  Receipt Date: 20080117
  Transmission Date: 20080703
  Serious: Yes (Hospitalization)
  Sender: FDA-Public Use
  Company Number: 08-000127

PATIENT
  Age: 3 Year
  Sex: Female

DRUGS (2)
  1. DURICEF [Suspect]
     Indication: BRONCHITIS
     Dosage: 1 DOSE EVERY 12 HOURS X 10 DAYS, ORAL
     Route: 048
     Dates: start: 20080114, end: 20080116
  2. PRELONE (PREDNISOLONE) [Concomitant]

REACTIONS (1)
  - PNEUMONIA [None]
